FAERS Safety Report 8338472 (Version 3)
Quarter: 2013Q2

REPORT INFORMATION
  Report Type: Spontaneous
  Country: US (occurrence: US)
  Receive Date: 20120117
  Receipt Date: 20130502
  Transmission Date: 20140414
  Serious: No
  Sender: FDA-Public Use
  Company Number: US-PFIZER INC-2012008167

PATIENT
  Age: 62 Year
  Sex: Female
  Weight: 81.63 kg

DRUGS (3)
  1. XALATAN [Suspect]
  2. ALDACTONE [Suspect]
  3. NARDIL [Suspect]

REACTIONS (1)
  - No adverse event [Unknown]
